FAERS Safety Report 7361040-6 (Version None)
Quarter: 2011Q1

REPORT INFORMATION
  Report Type: 
  Country: None (occurrence: None)
  Receive Date: 20110318
  Receipt Date: 20110315
  Transmission Date: 20110831
  Serious: Yes (Other)
  Sender: FDA-Public Use
  Company Number: US-PFIZER INC-2011057477

PATIENT
  Sex: Female
  Weight: 67.1 kg

DRUGS (8)
  1. PANTOPRAZOLE [Suspect]
     Indication: ULCER
     Dosage: UNK
  2. PANTOPRAZOLE [Suspect]
     Indication: OESOPHAGEAL DISORDER
  3. PROTONIX [Suspect]
     Indication: HIATUS HERNIA
  4. PROTONIX [Suspect]
     Indication: OESOPHAGEAL DISORDER
  5. PANTOPRAZOLE [Suspect]
     Indication: HIATUS HERNIA
  6. LIPITOR [Concomitant]
     Indication: BLOOD CHOLESTEROL INCREASED
     Dosage: UNK
  7. PROTONIX [Suspect]
     Indication: ULCER
     Dosage: 40 MG, 2X/DAY
     Route: 048
  8. TRANXENE [Concomitant]
     Indication: CONVULSION
     Dosage: UNK

REACTIONS (3)
  - DIABETES MELLITUS [None]
  - BLOOD CHOLESTEROL INCREASED [None]
  - DIARRHOEA [None]
